FAERS Safety Report 9426350 (Version 7)
Quarter: 2014Q1

REPORT INFORMATION
  Report Type: Report from Study
  Country: DE (occurrence: DE)
  Receive Date: 20130730
  Receipt Date: 20140315
  Transmission Date: 20141002
  Serious: Yes (Hospitalization)
  Sender: FDA-Public Use
  Company Number: DE-009507513-1307DEU013271

PATIENT
  Age: 58 Year
  Sex: Female

DRUGS (8)
  1. RIBAVIRIN [Suspect]
     Indication: CHRONIC HEPATITIS C
     Dosage: 1200 MG A DAY
     Route: 048
     Dates: start: 20130410, end: 20130429
  2. RIBAVIRIN [Suspect]
     Dosage: UNK
     Route: 048
     Dates: start: 20130503
  3. TELAPREVIR [Suspect]
     Indication: CHRONIC HEPATITIS C
     Dosage: 2250 MG A DAY
     Route: 048
     Dates: start: 20130410, end: 20130429
  4. TELAPREVIR [Suspect]
     Dosage: UNK
     Route: 048
     Dates: start: 20130503
  5. PEGASYS [Suspect]
     Indication: CHRONIC HEPATITIS C
     Dosage: 180 MICROGRAM, QW
     Route: 058
     Dates: start: 20130410, end: 2013
  6. PEGASYS [Suspect]
     Dosage: UNK
     Route: 058
     Dates: start: 2013
  7. LEVOTHYROXINE SODIUM [Concomitant]
     Indication: HYPOTHYROIDISM
     Dosage: 75 MICROGRAM, QD
     Route: 048
  8. METOCLOPRAMIDE [Concomitant]
     Dosage: UNK, PRN

REACTIONS (2)
  - Nausea [Recovered/Resolved]
  - Vomiting [Recovered/Resolved]
